FAERS Safety Report 5075656-3 (Version None)
Quarter: 2006Q3

REPORT INFORMATION
  Report Type: 
  Country: None (occurrence: None)
  Receive Date: 20060809
  Receipt Date: 20050517
  Transmission Date: 20061208
  Serious: No
  Sender: FDA-Public Use
  Company Number: US-AMGEN-KDL134700

PATIENT
  Age: 70 Year
  Sex: Female
  Weight: 70.4 kg

DRUGS (2)
  1. PROCRIT [Suspect]
     Indication: PREOPERATIVE CARE
     Dates: start: 20040101
  2. LOVENOX [Concomitant]

REACTIONS (6)
  - HAEMATOMA [None]
  - HAEMORRHAGE [None]
  - HYPOAESTHESIA [None]
  - PERONEAL NERVE PALSY [None]
  - POST PROCEDURAL COMPLICATION [None]
  - SCIATIC NERVE INJURY [None]
